FAERS Safety Report 15831974 (Version 1)
Quarter: 2019Q1

REPORT INFORMATION
  Report Type: Spontaneous
  Country: GR (occurrence: GR)
  Receive Date: 20190116
  Receipt Date: 20190116
  Transmission Date: 20190417
  Serious: No
  Sender: FDA-Public Use
  Company Number: GR-ALKEM LABORATORIES LIMITED-GR-ALKEM-2018-10433

PATIENT
  Age: 14 Year
  Sex: Female

DRUGS (2)
  1. PIPERACILLIN AND TAZOBACTAM [Concomitant]
     Active Substance: PIPERACILLIN SODIUM\TAZOBACTAM SODIUM
     Indication: CELLULITIS ORBITAL
     Dosage: UNK
     Route: 065
  2. LINEZOLID. [Suspect]
     Active Substance: LINEZOLID
     Indication: CELLULITIS ORBITAL
     Dosage: 30 MG/KG, QD
     Route: 042

REACTIONS (2)
  - Tooth discolouration [Recovered/Resolved]
  - Tongue discolouration [Recovered/Resolved]
